FAERS Safety Report 9055398 (Version 1)
Quarter: 2013Q1

REPORT INFORMATION
  Report Type: Spontaneous
  Country: US (occurrence: US)
  Receive Date: 20130206
  Receipt Date: 20130206
  Transmission Date: 20140127
  Serious: Yes (Hospitalization)
  Sender: FDA-Public Use
  Company Number: US-BAYER-2013-012765

PATIENT
  Age: 27 Year
  Sex: Female

DRUGS (7)
  1. YAZ [Suspect]
  2. MAXALT-MLT [Concomitant]
  3. METRONIDAZOLE [Concomitant]
  4. CERON DM SYRUP [Concomitant]
  5. PRODRIN [Concomitant]
     Dosage: UNK
     Dates: start: 20110210
  6. INDERAL [Concomitant]
     Dosage: UNK
     Dates: start: 20110210
  7. MAXALT [Concomitant]

REACTIONS (1)
  - Pulmonary embolism [None]
